FAERS Safety Report 5938138-X (Version None)
Quarter: 2008Q4

REPORT INFORMATION
  Report Type: 
  Country: None (occurrence: None)
  Receive Date: 20081031
  Receipt Date: 20081029
  Transmission Date: 20090506
  Serious: Yes (Hospitalization, Other)
  Sender: FDA-Public Use
  Company Number: US-ROXANE LABORATORIES, INC.-2008-RO-00108RO

PATIENT
  Sex: Female
  Weight: 64 kg

DRUGS (15)
  1. PREDNISONE [Suspect]
     Indication: SARCOIDOSIS
  2. DIAZEPAM [Suspect]
     Indication: PALPITATIONS
  3. DIAZEPAM [Suspect]
     Indication: TREMOR
  4. DIAZEPAM [Suspect]
     Indication: DIZZINESS
  5. DIAZEPAM [Suspect]
     Indication: PSYCHOMOTOR HYPERACTIVITY
  6. DIAZEPAM [Suspect]
     Indication: BACK PAIN
  7. VALIUM [Suspect]
     Indication: SARCOIDOSIS
     Dates: start: 19930101
  8. ADVAIR DISKUS 100/50 [Suspect]
     Indication: DRUG USE FOR UNKNOWN INDICATION
     Dosage: 1000MG
  9. MAXAIR [Suspect]
     Indication: DRUG USE FOR UNKNOWN INDICATION
  10. ALBUTEROL [Suspect]
     Indication: DRUG USE FOR UNKNOWN INDICATION
  11. STEROID [Suspect]
     Indication: DRUG USE FOR UNKNOWN INDICATION
  12. LIPITOR [Concomitant]
  13. SINGULAIR [Concomitant]
  14. EPIPEN [Concomitant]
  15. INHALERS [Concomitant]

REACTIONS (13)
  - BACK PAIN [None]
  - COUGH [None]
  - DIZZINESS [None]
  - DRUG INEFFECTIVE [None]
  - INSOMNIA [None]
  - JOINT STIFFNESS [None]
  - NAUSEA [None]
  - OXYGEN SATURATION ABNORMAL [None]
  - PALPITATIONS [None]
  - PSYCHOMOTOR HYPERACTIVITY [None]
  - SARCOIDOSIS [None]
  - SINUS OPERATION [None]
  - TREMOR [None]
